FAERS Safety Report 14393341 (Version 1)
Quarter: 2018Q1

REPORT INFORMATION
  Report Type: Spontaneous
  Country: GB (occurrence: GB)
  Receive Date: 20180116
  Receipt Date: 20180116
  Transmission Date: 20180509
  Serious: Yes (Hospitalization)
  Sender: FDA-Public Use
  Company Number: GB-TEVA-2018-GB-844863

PATIENT
  Age: 61 Year
  Sex: Male

DRUGS (18)
  1. PROCYCLIDINE [Concomitant]
     Active Substance: PROCYCLIDINE
     Dosage: ONCE DAILY AS NECESSARY
     Route: 065
  2. ATORVASTATIN [Concomitant]
     Active Substance: ATORVASTATIN
     Dosage: EVERY NIGHT
     Route: 065
  3. HALOPERIDOL. [Concomitant]
     Active Substance: HALOPERIDOL
     Route: 048
  4. RISPERIDONE. [Suspect]
     Active Substance: RISPERIDONE
     Dosage: APPEARS TO BE ON A REDUCING COURSE TO REDUCE TO 1MG TWICE DAILY
     Route: 065
  5. SALBUTAMOL [Concomitant]
     Active Substance: ALBUTEROL
     Dosage: PUFFS
     Route: 055
  6. AMLODIPINE [Concomitant]
     Active Substance: AMLODIPINE BESYLATE
     Route: 065
  7. DEPIXOL (FLUPENTIXOL DIHYDROCHLORIDE) [Suspect]
     Active Substance: FLUPENTIXOL DIHYDROCHLORIDE
     Dosage: 100MG/1ML SOLUTION FOR INJECTION
     Route: 065
  8. ACETYLSALICYLIC ACID [Concomitant]
     Active Substance: ASPIRIN
     Route: 065
  9. SERTRALINE [Concomitant]
     Active Substance: SERTRALINE HYDROCHLORIDE
     Route: 065
  10. LANSOPRAZOLE. [Concomitant]
     Active Substance: LANSOPRAZOLE
     Route: 065
  11. DR REDDYS LABS UK QUETIAPINE [Suspect]
     Active Substance: QUETIAPINE
     Route: 065
  12. LORAZEPAM. [Concomitant]
     Active Substance: LORAZEPAM
     Dosage: 1-2MG
     Route: 048
  13. HYOSCINE BUTYLBROMIDE [Concomitant]
     Active Substance: BUTYLSCOPOLAMINE
     Route: 065
  14. MIRTAZAPINE. [Concomitant]
     Active Substance: MIRTAZAPINE
     Route: 065
  15. NUTRITIONAL SUPPLEMENT [Concomitant]
     Active Substance: DIETARY SUPPLEMENT
     Dosage: ENSURE
     Route: 065
  16. BISOPROLOL [Concomitant]
     Active Substance: BISOPROLOL
     Route: 065
  17. RISPERIDONE. [Suspect]
     Active Substance: RISPERIDONE
     Dosage: APPEARS TO BE ON A REDUCING COURSE
     Route: 065
  18. MULTIVITAMIN [Concomitant]
     Active Substance: VITAMINS
     Route: 065

REACTIONS (3)
  - Neuroleptic malignant syndrome [Unknown]
  - Rhabdomyolysis [Unknown]
  - Acute kidney injury [Unknown]
